FAERS Safety Report 4566372-2 (Version None)
Quarter: 2005Q1

REPORT INFORMATION
  Report Type: 
  Country: None (occurrence: None)
  Receive Date: 20050126
  Receipt Date: 20050126
  Transmission Date: 20050727
  Serious: Yes (Hospitalization)
  Sender: FDA-Public Use
  Company Number: None

PATIENT
  Age: 70 Year
  Sex: Male
  Weight: 106.5953 kg

DRUGS (4)
  1. AMBIEN [Suspect]
     Indication: INSOMNIA
     Dosage: 10MG   QHS PRN   ORAL
     Route: 048
     Dates: start: 20050118, end: 20050119
  2. FLUOXETINE [Suspect]
     Indication: DEPRESSION
     Dosage: 20MG   QD   ORAL
     Route: 048
     Dates: start: 20000101, end: 20050125
  3. DILAUDID [Concomitant]
  4. TYLOX [Concomitant]

REACTIONS (5)
  - CONFUSIONAL STATE [None]
  - HALLUCINATION, VISUAL [None]
  - INSOMNIA [None]
  - MUSCLE SPASMS [None]
  - PAIN [None]
